FAERS Safety Report 13291355 (Version 1)
Quarter: 2017Q1

REPORT INFORMATION
  Report Type: Report from Study
  Country: BR (occurrence: BR)
  Receive Date: 20170303
  Receipt Date: 20170303
  Transmission Date: 20170428
  Serious: Yes (Death)
  Sender: FDA-Public Use
  Company Number: PHHY2017BR032996

PATIENT
  Sex: Male
  Weight: 68 kg

DRUGS (1)
  1. EXELON PATCH [Suspect]
     Active Substance: RIVASTIGMINE
     Indication: SENILE DEMENTIA
     Dosage: 9.5 MG, QW PATCH (10CM2 )
     Route: 062

REACTIONS (3)
  - Inappropriate schedule of drug administration [Unknown]
  - Product use issue [Unknown]
  - Arrhythmia [Fatal]
